FAERS Safety Report 23758681 (Version 1)
Quarter: 2024Q2

REPORT INFORMATION
  Report Type: Spontaneous
  Country: US (occurrence: None)
  Receive Date: 20240418
  Receipt Date: 20240418
  Transmission Date: 20240716
  Serious: No
  Sender: FDA-Public Use
  Company Number: US-ROCHE-3460444

PATIENT
  Sex: Female

DRUGS (2)
  1. AVASTIN [Suspect]
     Active Substance: BEVACIZUMAB
     Indication: Colorectal cancer
     Route: 065
  2. PANITUMUMAB [Concomitant]
     Active Substance: PANITUMUMAB
     Indication: Colorectal cancer

REACTIONS (1)
  - Pain [Not Recovered/Not Resolved]
